FAERS Safety Report 5742056-X (Version None)
Quarter: 2008Q2

REPORT INFORMATION
  Report Type: 
  Country: None (occurrence: None)
  Receive Date: 20080519
  Receipt Date: 20080507
  Transmission Date: 20081010
  Serious: Yes (Other)
  Sender: FDA-Public Use
  Company Number: JP-MERCK-0805USA02011

PATIENT
  Age: 63 Year
  Sex: Male
  Weight: 59 kg

DRUGS (8)
  1. DECADRON [Suspect]
     Route: 048
  2. PROPOFOL [Concomitant]
     Indication: INDUCTION AND MAINTENANCE OF ANAESTHESIA
     Route: 042
  3. ULTIVA [Concomitant]
     Indication: INDUCTION AND MAINTENANCE OF ANAESTHESIA
     Route: 042
  4. VECURONIUM BROMIDE [Concomitant]
     Indication: INDUCTION OF ANAESTHESIA
     Route: 042
  5. DOYLE [Concomitant]
     Route: 042
  6. OXYGEN [Concomitant]
     Indication: INDUCTION AND MAINTENANCE OF ANAESTHESIA
  7. ROPION [Concomitant]
     Indication: POSTOPERATIVE ANALGESIA
     Route: 042
  8. FENTANYL CITRATE [Concomitant]
     Indication: POSTOPERATIVE ANALGESIA
     Route: 042

REACTIONS (1)
  - ANAPHYLACTOID REACTION [None]
